FAERS Safety Report 16975287 (Version 1)
Quarter: 2019Q4

REPORT INFORMATION
  Report Type: Spontaneous
  Country: US (occurrence: US)
  Receive Date: 20191030
  Receipt Date: 20191030
  Transmission Date: 20200122
  Serious: Yes (Other)
  Sender: FDA-Public Use
  Company Number: US-ROCHE-2452507

PATIENT
  Age: 46 Year
  Sex: Female
  Weight: 83 kg

DRUGS (2)
  1. HERCEPTIN HYLECTA [Suspect]
     Active Substance: TRASTUZUMAB AND HYALURONIDASE-OYSK
     Indication: HER-2 POSITIVE BREAST CANCER
     Route: 058
     Dates: start: 20190816, end: 20190910
  2. HERCEPTIN [Suspect]
     Active Substance: TRASTUZUMAB
     Indication: HER-2 POSITIVE BREAST CANCER
     Route: 065

REACTIONS (2)
  - Rash [Recovered/Resolved]
  - Urticaria [Recovered/Resolved]

NARRATIVE: CASE EVENT DATE: 20190817
